FAERS Safety Report 8270032-4 (Version None)
Quarter: 2012Q2

REPORT INFORMATION
  Report Type: 
  Country: None (occurrence: None)
  Receive Date: 20120410
  Receipt Date: 20120329
  Transmission Date: 20120825
  Serious: Yes (Hospitalization)
  Sender: FDA-Public Use
  Company Number: US-SANOFI-AVENTIS-2012SA022128

PATIENT
  Age: 84 Year
  Sex: Female

DRUGS (2)
  1. HUMALOG [Concomitant]
     Dosage: AM AND AT LUNCH
  2. LANTUS [Suspect]
     Dosage: DOSE:30 UNIT(S)
     Route: 058

REACTIONS (4)
  - BLOOD GLUCOSE INCREASED [None]
  - CONFUSIONAL STATE [None]
  - AMMONIA INCREASED [None]
  - HEPATIC ENCEPHALOPATHY [None]
